FAERS Safety Report 16318342 (Version 1)
Quarter: 2019Q2

REPORT INFORMATION
  Report Type: Spontaneous
  Country: GB (occurrence: GB)
  Receive Date: 20190516
  Receipt Date: 20190516
  Transmission Date: 20190711
  Serious: Yes (Hospitalization, Other)
  Sender: FDA-Public Use
  Company Number: GB-AUROBINDO-AUR-APL-2019-025839

PATIENT

DRUGS (4)
  1. VALACICLOVIR [Concomitant]
     Active Substance: VALACYCLOVIR HYDROCHLORIDE
     Indication: HIV INFECTION
     Dosage: 500 MILLIGRAM
     Route: 065
  2. TRIUMEQ [Concomitant]
     Active Substance: ABACAVIR SULFATE\DOLUTEGRAVIR SODIUM\LAMIVUDINE
     Indication: HIV INFECTION
     Dosage: 30 UNK, UNK
     Route: 065
  3. ATORVASTATIN [Concomitant]
     Active Substance: ATORVASTATIN
     Indication: HIV INFECTION
     Dosage: 20 MILLIGRAM
     Route: 065
  4. TENOFOVIR DISOPROXIL FILM COATED TABLETS [Suspect]
     Active Substance: TENOFOVIR DISOPROXIL
     Indication: HIV INFECTION
     Dosage: 245 MILLIGRAM
     Route: 065

REACTIONS (2)
  - Intestinal operation [Unknown]
  - Bladder repair [Unknown]

NARRATIVE: CASE EVENT DATE: 20171115
